FAERS Safety Report 6513098-1 (Version None)
Quarter: 2009Q4

REPORT INFORMATION
  Report Type: 
  Country: None (occurrence: None)
  Receive Date: 20091222
  Receipt Date: 20091222
  Transmission Date: 20100525
  Serious: Yes (Other)
  Sender: FDA-Public Use
  Company Number: None

PATIENT
  Age: 30 Year
  Sex: Male
  Weight: 127.0072 kg

DRUGS (1)
  1. ASTEPRO [Suspect]
     Indication: NASAL CONGESTION
     Dosage: 1 SPRAY 1/DAY NASAL
     Route: 045
     Dates: start: 20091201, end: 20091220

REACTIONS (1)
  - CHEST PAIN [None]
